FAERS Safety Report 20215286 (Version 1)
Quarter: 2021Q4

REPORT INFORMATION
  Report Type: Spontaneous
  Country: CN (occurrence: CN)
  Receive Date: 20211222
  Receipt Date: 20211222
  Transmission Date: 20220303
  Serious: Yes (Disabling)
  Sender: FDA-Public Use
  Company Number: CN-009507513-2112CHN006502

PATIENT
  Age: 89 Year
  Sex: Male

DRUGS (1)
  1. CANCIDAS [Suspect]
     Active Substance: CASPOFUNGIN ACETATE
     Indication: Fungal infection
     Dosage: 50 MG, ONCE A DAY (QD)
     Route: 041
     Dates: start: 20211127, end: 20211205

REACTIONS (1)
  - Blood creatinine increased [Recovering/Resolving]

NARRATIVE: CASE EVENT DATE: 20211205
